FAERS Safety Report 22359498 (Version 3)
Quarter: 2023Q2

REPORT INFORMATION
  Report Type: Spontaneous
  Country: US (occurrence: US)
  Receive Date: 20230524
  Receipt Date: 20230621
  Transmission Date: 20230722
  Serious: No
  Sender: FDA-Public Use
  Company Number: US-JNJFOC-20230552307

PATIENT
  Age: 53 Year
  Sex: Male

DRUGS (5)
  1. TREMFYA [Suspect]
     Active Substance: GUSELKUMAB
     Indication: Psoriasis
     Route: 065
  2. TREMFYA [Suspect]
     Active Substance: GUSELKUMAB
     Route: 065
  3. FLUOCINONIDE [Concomitant]
     Active Substance: FLUOCINONIDE
  4. BETAMETHASONE [Concomitant]
     Active Substance: BETAMETHASONE
  5. TACROLIMUS [Concomitant]
     Active Substance: TACROLIMUS

REACTIONS (2)
  - Product quality issue [Unknown]
  - Underdose [Unknown]

NARRATIVE: CASE EVENT DATE: 20230520
